FAERS Safety Report 21286111 (Version 3)
Quarter: 2022Q3

REPORT INFORMATION
  Report Type: Other
  Country: BR (occurrence: None)
  Receive Date: 20220902
  Receipt Date: 20220908
  Transmission Date: 20221026
  Serious: No
  Sender: FDA-Public Use
  Company Number: BR-ROCHE-3167468

PATIENT
  Age: 61 Year
  Sex: Female
  Weight: 78 kg

DRUGS (5)
  1. OCREVUS [Suspect]
     Active Substance: OCRELIZUMAB
     Indication: Primary progressive multiple sclerosis
     Route: 042
     Dates: start: 202005
  2. MODAFINIL [Concomitant]
     Active Substance: MODAFINIL
  3. TRAZODONE [Concomitant]
     Active Substance: TRAZODONE HYDROCHLORIDE
  4. ESCITALOPRAM [Concomitant]
     Active Substance: ESCITALOPRAM OXALATE
  5. TIBOLONE [Concomitant]
     Active Substance: TIBOLONE

REACTIONS (8)
  - Throat irritation [Unknown]
  - COVID-19 [Recovered/Resolved]
  - Skin disorder [Unknown]
  - Immunodeficiency [Unknown]
  - Trigeminal neuritis [Unknown]
  - Trigeminal neuralgia [Unknown]
  - Dizziness [Unknown]
  - Speech disorder [Unknown]

NARRATIVE: CASE EVENT DATE: 20220223
